FAERS Safety Report 13447006 (Version 1)
Quarter: 2017Q2

REPORT INFORMATION
  Report Type: Spontaneous
  Country: US (occurrence: US)
  Receive Date: 20170414
  Receipt Date: 20170414
  Transmission Date: 20170830
  Serious: Yes (Disabling)
  Sender: FDA-Public Use
  Company Number: None

PATIENT
  Age: 45 Year
  Sex: Female
  Weight: 58.5 kg

DRUGS (2)
  1. LEENA [Suspect]
     Active Substance: ETHINYL ESTRADIOL\NORETHINDRONE
     Indication: ORAL CONTRACEPTION
     Dosage: ?          QUANTITY:28 TABLET(S);?
     Route: 048
  2. XANAX [Suspect]
     Active Substance: ALPRAZOLAM

REACTIONS (11)
  - Salivary hypersecretion [None]
  - Libido increased [None]
  - Diarrhoea [None]
  - Tremor [None]
  - Panic attack [None]
  - Myocardial infarction [None]
  - Product substitution issue [None]
  - Psoriasis [None]
  - Hyperhidrosis [None]
  - Decreased appetite [None]
  - Bronchospasm [None]

NARRATIVE: CASE EVENT DATE: 20170308
